FAERS Safety Report 20697136 (Version 1)
Quarter: 2022Q2

REPORT INFORMATION
  Report Type: Spontaneous
  Country: FR (occurrence: FR)
  Receive Date: 20220411
  Receipt Date: 20220411
  Transmission Date: 20220721
  Serious: Yes (Life-Threatening, Other)
  Sender: FDA-Public Use
  Company Number: FR-BoehringerIngelheim-2022-BI-164227

PATIENT
  Age: 8 Month
  Sex: Male
  Weight: 7 kg

DRUGS (1)
  1. CLONIDINE [Suspect]
     Active Substance: CLONIDINE
     Indication: Withdrawal syndrome
     Dosage: FORM STRENGTH 0, 15 UG/KG,
     Route: 040
     Dates: start: 20220314, end: 20220314

REACTIONS (6)
  - Sinus bradycardia [Recovered/Resolved]
  - Malignant hypertension [Recovering/Resolving]
  - Coma [Recovered/Resolved]
  - Incorrect dose administered [Recovered/Resolved]
  - Product preparation error [Recovered/Resolved]
  - Off label use [Unknown]

NARRATIVE: CASE EVENT DATE: 20220314
